FAERS Safety Report 12949544 (Version 1)
Quarter: 2016Q4

REPORT INFORMATION
  Report Type: Spontaneous
  Country: US (occurrence: US)
  Receive Date: 20161116
  Receipt Date: 20161116
  Transmission Date: 20170207
  Serious: Yes (Hospitalization)
  Sender: FDA-Public Use
  Company Number: None

PATIENT
  Age: 84 Year
  Sex: Male
  Weight: 64.7 kg

DRUGS (1)
  1. FERAHEME [Suspect]
     Active Substance: FERUMOXYTOL NON-STOICHIOMETRIC MAGNETITE
     Indication: NEPHROGENIC ANAEMIA
     Dosage: ?          OTHER FREQUENCY:ONCE;?
     Route: 041
     Dates: start: 20161115

REACTIONS (8)
  - Blood pressure decreased [None]
  - Dizziness [None]
  - Hypovolaemia [None]
  - Feeling cold [None]
  - Infusion related reaction [None]
  - Nausea [None]
  - Tremor [None]
  - Swelling [None]

NARRATIVE: CASE EVENT DATE: 20161115
